FAERS Safety Report 15438352 (Version 1)
Quarter: 2018Q4

REPORT INFORMATION
  Report Type: Spontaneous
  Country: US (occurrence: US)
  Receive Date: 20180928
  Receipt Date: 20180928
  Transmission Date: 20190204
  Serious: No
  Sender: FDA-Public Use
  Company Number: US-BION-007066

PATIENT
  Age: 73 Year
  Sex: Female

DRUGS (3)
  1. METHOTREXATE. [Concomitant]
     Active Substance: METHOTREXATE
     Indication: AUTOIMMUNE DISORDER
  2. LOPERAMIDE EQUATE 2 MG CAPSULES [Suspect]
     Active Substance: LOPERAMIDE HYDROCHLORIDE
     Indication: PRODUCT USED FOR UNKNOWN INDICATION
  3. SYNTHROID [Concomitant]
     Active Substance: LEVOTHYROXINE SODIUM
     Indication: AUTOIMMUNE DISORDER

REACTIONS (1)
  - Expired product administered [Not Recovered/Not Resolved]
